FAERS Safety Report 6743100-3 (Version None)
Quarter: 2010Q2

REPORT INFORMATION
  Report Type: 
  Country: None (occurrence: None)
  Receive Date: 20100527
  Receipt Date: 20100513
  Transmission Date: 20101027
  Serious: Yes (Other)
  Sender: FDA-Public Use
  Company Number: US-RANBAXY-2010US-33866

PATIENT

DRUGS (3)
  1. ZIDOVUDINE [Suspect]
     Indication: ANTIRETROVIRAL THERAPY
     Dosage: UNK, UNK
     Route: 065
  2. LAMIVUDINE [Suspect]
     Indication: ANTIRETROVIRAL THERAPY
     Dosage: UNK, UNK
     Route: 065
  3. SAQUINAVIR [Suspect]
     Indication: ANTIRETROVIRAL THERAPY
     Route: 065

REACTIONS (1)
  - PROGRESSIVE MULTIFOCAL LEUKOENCEPHALOPATHY [None]
